FAERS Safety Report 20179227 (Version 1)
Quarter: 2021Q4

REPORT INFORMATION
  Report Type: Spontaneous
  Country: US (occurrence: US)
  Receive Date: 20211214
  Receipt Date: 20211214
  Transmission Date: 20220303
  Serious: Yes (Other)
  Sender: FDA-Public Use
  Company Number: US-MYLANLABS-2021M1092545

PATIENT
  Age: 69 Year
  Sex: Male

DRUGS (4)
  1. FLUOROURACIL [Suspect]
     Active Substance: FLUOROURACIL
     Indication: Rectal adenocarcinoma
     Dosage: UNK
     Route: 065
  2. FLUOROURACIL [Suspect]
     Active Substance: FLUOROURACIL
     Indication: Radiosensitisation therapy
  3. CAPECITABINE [Suspect]
     Active Substance: CAPECITABINE
     Indication: Rectal adenocarcinoma
     Dosage: UNK
     Route: 048
  4. CAPECITABINE [Suspect]
     Active Substance: CAPECITABINE
     Indication: Radiosensitisation therapy

REACTIONS (6)
  - Diarrhoea [Unknown]
  - Anal incontinence [Unknown]
  - Urinary hesitation [Unknown]
  - Rectal tenesmus [Unknown]
  - Abdominal rigidity [Unknown]
  - Anal erythema [Unknown]
